FAERS Safety Report 4916549-9 (Version None)
Quarter: 2006Q1

REPORT INFORMATION
  Report Type: 
  Country: None (occurrence: None)
  Receive Date: 20060216
  Receipt Date: 20060216
  Transmission Date: 20060701
  Serious: Yes (Hospitalization)
  Sender: FDA-Public Use
  Company Number: None

PATIENT
  Age: 58 Year
  Sex: Male
  Weight: 63.5 kg

DRUGS (3)
  1. DAPSONE [Suspect]
     Indication: PNEUMOCYSTIS JIROVECI PNEUMONIA
  2. DAPSONE [Suspect]
     Indication: PROPHYLAXIS
  3. METHYLENE BLUE [Concomitant]

REACTIONS (1)
  - METHAEMOGLOBINAEMIA [None]
